FAERS Safety Report 12449001 (Version 3)
Quarter: 2016Q3

REPORT INFORMATION
  Report Type: Spontaneous
  Country: UA (occurrence: UA)
  Receive Date: 20160608
  Receipt Date: 20160706
  Transmission Date: 20161109
  Serious: Yes (Other)
  Sender: FDA-Public Use
  Company Number: UA-PFIZER INC-2016287743

PATIENT
  Age: 42 Year
  Sex: Female

DRUGS (4)
  1. ZELDOX [Suspect]
     Active Substance: ZIPRASIDONE
     Dosage: 40 MG, 3X/DAY
     Route: 048
  2. ZELDOX [Suspect]
     Active Substance: ZIPRASIDONE
     Indication: HALLUCINATION, AUDITORY
     Dosage: 40 MG, 2X/DAY
     Route: 048
  3. QUETIRON [Suspect]
     Active Substance: QUETIAPINE FUMARATE
     Dosage: UNK
  4. ZELDOX [Suspect]
     Active Substance: ZIPRASIDONE
     Dosage: 80 MG, DAILY
     Route: 048

REACTIONS (2)
  - Sedation [Recovered/Resolved]
  - Hypertensive crisis [Recovered/Resolved]
